FAERS Safety Report 25970678 (Version 1)
Quarter: 2025Q4

REPORT INFORMATION
  Report Type: Spontaneous
  Country: US (occurrence: US)
  Receive Date: 20251028
  Receipt Date: 20251028
  Transmission Date: 20260117
  Serious: Yes (Hospitalization)
  Sender: BRISTOL-MYERS SQUIBB COMPANY
  Company Number: US-BRISTOL-MYERS SQUIBB COMPANY-2025-146461

PATIENT
  Age: 67 Year
  Sex: Male

DRUGS (3)
  1. REVLIMID [Suspect]
     Active Substance: LENALIDOMIDE
     Indication: Plasma cell myeloma
     Dosage: FREQ : DAILY, 3 WEEKS ON 1 WEEK OFF?STRENGTH: 25 MG
     Route: 048
     Dates: start: 20250222
  2. REVLIMID [Suspect]
     Active Substance: LENALIDOMIDE
     Dosage: FREQ : DAILY, 3 WEEKS ON 1 WEEK OFF?STRENGTH: 20 MG
     Route: 048
     Dates: start: 20250301
  3. REVLIMID [Suspect]
     Active Substance: LENALIDOMIDE
     Dosage: FREQ : DAILY, 3 WEEKS ON 1 WEEK OFF?STRENGTH: 10 MG
     Route: 048

REACTIONS (1)
  - Hospitalisation [Unknown]
